FAERS Safety Report 11156554 (Version 1)
Quarter: 2015Q2

REPORT INFORMATION
  Report Type: Spontaneous
  Country: GB (occurrence: GB)
  Receive Date: 20150602
  Receipt Date: 20150602
  Transmission Date: 20150821
  Serious: Yes (Other)
  Sender: FDA-Public Use
  Company Number: PHHY2015GB061764

PATIENT
  Age: 29 Year
  Sex: Female
  Weight: 50 kg

DRUGS (3)
  1. AMOXICILLIN. [Suspect]
     Active Substance: AMOXICILLIN
     Indication: GINGIVITIS
     Dosage: BEFORE FOOD
     Route: 048
     Dates: start: 20150424, end: 20150501
  2. METRONIDAZOLE. [Suspect]
     Active Substance: METRONIDAZOLE
     Indication: GINGIVITIS
     Dosage: 400 MG, TID
     Route: 048
     Dates: start: 20150424, end: 20150501
  3. LACTOBACILLUS ACIDOPHILUS [Concomitant]
     Active Substance: LACTOBACILLUS ACIDOPHILUS
     Indication: PRODUCT USED FOR UNKNOWN INDICATION
     Route: 065
     Dates: start: 20150429, end: 20150506

REACTIONS (8)
  - Haemorrhage urinary tract [Recovering/Resolving]
  - Diarrhoea [Recovered/Resolved]
  - Candida infection [Recovering/Resolving]
  - Urinary tract infection [Recovering/Resolving]
  - Sensitivity of teeth [Recovered/Resolved]
  - Micturition urgency [Recovering/Resolving]
  - Blood urine present [Recovering/Resolving]
  - Depressed mood [Recovered/Resolved]

NARRATIVE: CASE EVENT DATE: 20150426
